FAERS Safety Report 25411067 (Version 2)
Quarter: 2025Q3

REPORT INFORMATION
  Report Type: Spontaneous
  Country: EU (occurrence: EU)
  Receive Date: 20250609
  Receipt Date: 20250821
  Transmission Date: 20251021
  Serious: Yes (Hospitalization)
  Sender: TEVA
  Company Number: EU-TEVA-VS-3338471

PATIENT

DRUGS (4)
  1. PROPRANOLOL [Suspect]
     Active Substance: PROPRANOLOL HYDROCHLORIDE
     Indication: Anxiety
     Route: 065
  2. BUPROPION [Suspect]
     Active Substance: BUPROPION
     Indication: Ex-tobacco user
     Route: 065
  3. QUETIAPINE [Suspect]
     Active Substance: QUETIAPINE
     Indication: Suicide attempt
     Route: 065
  4. TEMAZEPAM [Concomitant]
     Active Substance: TEMAZEPAM
     Indication: Sleep disorder
     Route: 065

REACTIONS (11)
  - Intentional overdose [Unknown]
  - Toxicity to various agents [Recovered/Resolved]
  - Depressed level of consciousness [Recovered/Resolved]
  - Hypotension [Recovered/Resolved]
  - Heart rate decreased [Recovered/Resolved]
  - Dysarthria [Recovered/Resolved]
  - Myoclonus [Recovered/Resolved]
  - Seizure [Recovered/Resolved]
  - Bradycardia [Recovered/Resolved]
  - Blood pressure systolic decreased [Recovered/Resolved]
  - Cardiogenic shock [Recovered/Resolved]
